FAERS Safety Report 10258982 (Version 1)
Quarter: 2014Q2

REPORT INFORMATION
  Report Type: Report from Study
  Country: FR (occurrence: FR)
  Receive Date: 20140625
  Receipt Date: 20140625
  Transmission Date: 20141212
  Serious: Yes (Other)
  Sender: FDA-Public Use
  Company Number: FR-GLAXOSMITHKLINE-B0720896C

PATIENT
  Age: 83 Year
  Sex: Male
  Weight: 58 kg

DRUGS (7)
  1. OFATUMUMAB [Suspect]
     Indication: DIFFUSE LARGE B-CELL LYMPHOMA
     Dosage: 1000MG CYCLIC
     Route: 042
     Dates: start: 20110413
  2. CHOP [Suspect]
     Indication: DIFFUSE LARGE B-CELL LYMPHOMA
     Route: 042
     Dates: start: 20110413
  3. RADIOTHERAPY [Suspect]
     Indication: PRODUCT USED FOR UNKNOWN INDICATION
     Route: 065
  4. PRAVASTATINE [Concomitant]
     Indication: HYPERCHOLESTEROLAEMIA
  5. INEXIUM [Concomitant]
     Indication: PROPHYLAXIS AGAINST GASTROINTESTINAL ULCER
     Dates: start: 20110406
  6. TRIMEBUTINE [Concomitant]
     Indication: ABDOMINAL RIGIDITY
     Dates: start: 20110717
  7. METHOTREXATE [Concomitant]
     Indication: LYMPHOMA
     Dates: start: 20110413, end: 20110615

REACTIONS (2)
  - Rectal haemorrhage [Recovered/Resolved with Sequelae]
  - Anaemia [Recovered/Resolved]
